FAERS Safety Report 4691097-2 (Version None)
Quarter: 2005Q2

REPORT INFORMATION
  Report Type: 
  Country: None (occurrence: None)
  Receive Date: 20050615
  Receipt Date: 20050607
  Transmission Date: 20051028
  Serious: Yes (Other)
  Sender: FDA-Public Use
  Company Number: US-BRISTOL-MYERS SQUIBB COMPANY-12997227

PATIENT
  Age: 56 Year
  Sex: Female

DRUGS (8)
  1. ESTRACE [Suspect]
     Indication: MENOPAUSAL SYMPTOMS
  2. PREMPHASE 14/14 [Suspect]
     Indication: MENOPAUSAL SYMPTOMS
  3. ESTRATEST [Suspect]
     Indication: MENOPAUSAL SYMPTOMS
  4. PREMARIN [Suspect]
     Indication: MENOPAUSAL SYMPTOMS
  5. PROVERA [Suspect]
     Indication: MENOPAUSAL SYMPTOMS
  6. ESTRADERM [Suspect]
     Indication: MENOPAUSAL SYMPTOMS
  7. OGEN [Suspect]
     Indication: MENOPAUSAL SYMPTOMS
  8. CYCRIN [Suspect]
     Indication: MENOPAUSAL SYMPTOMS

REACTIONS (1)
  - BREAST CANCER [None]
